FAERS Safety Report 14407536 (Version 1)
Quarter: 2018Q1

REPORT INFORMATION
  Report Type: Report from Study
  Country: DE (occurrence: DE)
  Receive Date: 20180118
  Receipt Date: 20180118
  Transmission Date: 20180509
  Serious: Yes (Hospitalization)
  Sender: FDA-Public Use
  Company Number: PHHO2013DE002787

PATIENT
  Age: 58 Year
  Sex: Male
  Weight: 58 kg

DRUGS (6)
  1. COMPARATOR PACLITAXEL [Suspect]
     Active Substance: PACLITAXEL
     Indication: GASTRIC CANCER
     Dosage: 80 MG/M2, ON DAY 1, DAY 8 AND DAY 15
     Route: 065
     Dates: start: 20130204, end: 20130204
  2. PANTOZOL [Concomitant]
     Active Substance: PANTOPRAZOLE SODIUM
     Indication: PRODUCT USED FOR UNKNOWN INDICATION
     Dosage: 40 MG, BID
     Route: 048
     Dates: start: 201211
  3. PLACEBO [Suspect]
     Active Substance: UNSPECIFIED INGREDIENT
     Dosage: DAILY D1-D28
     Route: 048
     Dates: start: 20130214
  4. COMPARATOR PACLITAXEL [Suspect]
     Active Substance: PACLITAXEL
     Dosage: 80 MG/M2, ON DAY 1, DAY 8 AND DAY 15
     Route: 065
     Dates: start: 20130219
  5. PLACEBO [Suspect]
     Active Substance: UNSPECIFIED INGREDIENT
     Indication: GASTRIC CANCER
     Dosage: DAILY D1-D28
     Route: 048
     Dates: start: 20130204, end: 20130211
  6. MCP ^HEXAL^ [Concomitant]
     Indication: NAUSEA
     Dosage: 20 MG, TID
     Route: 048
     Dates: start: 201212

REACTIONS (2)
  - Vomiting [Recovered/Resolved]
  - Haematemesis [Not Recovered/Not Resolved]

NARRATIVE: CASE EVENT DATE: 20130204
